FAERS Safety Report 16742065 (Version 1)
Quarter: 2019Q3

REPORT INFORMATION
  Report Type: Spontaneous
  Country: FR (occurrence: FR)
  Receive Date: 20190826
  Receipt Date: 20190826
  Transmission Date: 20191005
  Serious: Yes (Other)
  Sender: FDA-Public Use
  Company Number: FR-TEVA-2019-FR-1096059

PATIENT
  Age: 25 Year
  Sex: Female
  Weight: 115 kg

DRUGS (3)
  1. DIAZEPAM. [Suspect]
     Active Substance: DIAZEPAM
     Dates: start: 20181205, end: 20181205
  2. HYDROXYZINE (CHLORHYDRATE D^) [Suspect]
     Active Substance: HYDROXYZINE HYDROCHLORIDE
     Dates: start: 20181205, end: 20181205
  3. QUETIAPINE. [Suspect]
     Active Substance: QUETIAPINE
     Route: 065
     Dates: start: 20181205, end: 20181205

REACTIONS (1)
  - Chemical submission [Recovered/Resolved with Sequelae]

NARRATIVE: CASE EVENT DATE: 20181205
